FAERS Safety Report 10874635 (Version 1)
Quarter: 2015Q1

REPORT INFORMATION
  Report Type: Report from Study
  Country: US (occurrence: US)
  Receive Date: 20150227
  Receipt Date: 20150227
  Transmission Date: 20150721
  Serious: Yes (Hospitalization)
  Sender: FDA-Public Use
  Company Number: US-ABBVIE-15P-163-1349437-00

PATIENT
  Sex: Male

DRUGS (3)
  1. RIBAVIRIN. [Concomitant]
     Active Substance: RIBAVIRIN
     Indication: PRODUCT USED FOR UNKNOWN INDICATION
     Route: 048
     Dates: start: 201501, end: 2015
  2. VIEKIRA PAK [Suspect]
     Active Substance: DASABUVIR\OMBITASVIR\PARITAPREVIR\RITONAVIR
     Indication: HEPATITIS C
     Dosage: 2 PINK TABLETS QD AM; 1 BEIGE TABLET BID AM + PM W/FOOD
     Route: 048
     Dates: start: 201501
  3. RIBAVIRIN. [Concomitant]
     Active Substance: RIBAVIRIN
     Dosage: DOSE REDUCED
     Route: 048
     Dates: start: 2015

REACTIONS (5)
  - Dyspnoea [Recovering/Resolving]
  - Anaemia [Recovering/Resolving]
  - Dehydration [Recovering/Resolving]
  - Hyperkalaemia [Recovering/Resolving]
  - Respiratory disorder [Recovering/Resolving]

NARRATIVE: CASE EVENT DATE: 2015
